FAERS Safety Report 9414750 (Version 2)
Quarter: 2013Q3

REPORT INFORMATION
  Report Type: Spontaneous
  Country: US (occurrence: US)
  Receive Date: 20130723
  Receipt Date: 20130731
  Transmission Date: 20140515
  Serious: No
  Sender: FDA-Public Use
  Company Number: US-009507513-1307USA012668

PATIENT
  Age: 55 Year
  Sex: Female
  Weight: 47.62 kg

DRUGS (3)
  1. CLARITIN [Suspect]
     Indication: NASAL CONGESTION
     Dosage: 10 MG, UNKNOWN
     Route: 048
     Dates: start: 20130703, end: 20130708
  2. CLARITIN [Suspect]
     Indication: NASOPHARYNGITIS
  3. CLARITIN [Suspect]
     Indication: MEDICAL OBSERVATION

REACTIONS (1)
  - Somnolence [Recovered/Resolved]
